FAERS Safety Report 7021593-4 (Version None)
Quarter: 2010Q3

REPORT INFORMATION
  Report Type: 
  Country: None (occurrence: None)
  Receive Date: 20100928
  Receipt Date: 20100915
  Transmission Date: 20110219
  Serious: Yes (Other)
  Sender: FDA-Public Use
  Company Number: WAES 1009USA03691

PATIENT
  Age: 70 Year
  Sex: Male
  Weight: 83.9154 kg

DRUGS (7)
  1. ZOCOR [Suspect]
     Indication: ACUTE CORONARY SYNDROME
     Dosage: 40 MG/DAILY/PO
     Route: 048
     Dates: start: 20070224
  2. PLACEBO (UNSPECIFIED) [Suspect]
     Indication: ACUTE CORONARY SYNDROME
     Dosage: DAILY/PO
     Route: 048
     Dates: start: 20070224
  3. TAB PLACEBO (UNSPECIFIED [Suspect]
     Indication: ACUTE CORONARY SYNDROME
     Dosage: PO
     Route: 048
     Dates: start: 20070224
  4. LEVEMIR [Concomitant]
  5. LEVSIN [Concomitant]
  6. ASPIRIN [Concomitant]
  7. ISOSORBIDE MONONITRATE [Concomitant]

REACTIONS (1)
  - NASAL CAVITY CANCER [None]
